FAERS Safety Report 5123521-5 (Version None)
Quarter: 2006Q4

REPORT INFORMATION
  Report Type: 
  Country: None (occurrence: None)
  Receive Date: 20061010
  Receipt Date: 20060928
  Transmission Date: 20070319
  Serious: Yes (Hospitalization, Other)
  Sender: FDA-Public Use
  Company Number: JP-JNJFOC-20060904636

PATIENT
  Sex: Female

DRUGS (9)
  1. REMICADE [Suspect]
  2. REMICADE [Suspect]
  3. REMICADE [Suspect]
  4. REMICADE [Suspect]
  5. REMICADE [Suspect]
     Indication: RHEUMATOID ARTHRITIS
  6. ISONIAZID [Concomitant]
     Route: 048
  7. ISONIAZID [Concomitant]
     Route: 048
  8. RHEUMATREX [Concomitant]
     Indication: RHEUMATOID ARTHRITIS
     Route: 048
  9. PREDNISOLONE [Concomitant]
     Route: 048

REACTIONS (9)
  - ARTHRITIS [None]
  - ASCITES [None]
  - CHEST X-RAY ABNORMAL [None]
  - CHILLS [None]
  - HEADACHE [None]
  - PHARYNGOLARYNGEAL PAIN [None]
  - PLEURAL EFFUSION [None]
  - PYREXIA [None]
  - RHINORRHOEA [None]
